FAERS Safety Report 6400932-9 (Version None)
Quarter: 2009Q4

REPORT INFORMATION
  Report Type: 
  Country: None (occurrence: None)
  Receive Date: 20091009
  Receipt Date: 20090929
  Transmission Date: 20100525
  Serious: Yes (Hospitalization, Other)
  Sender: FDA-Public Use
  Company Number: MC200900371

PATIENT

DRUGS (1)
  1. BIVALIRUDIN [Suspect]
     Indication: ANGIOPLASTY
     Dosage: 0.75 MG/KG, BOLUS, INTRAVENOUS; 1.75 MG/KG, HR, INTRAVENOUS
     Route: 042

REACTIONS (14)
  - AMPUTATION [None]
  - GASTROINTESTINAL ARTERIOVENOUS MALFORMATION [None]
  - GASTROINTESTINAL HAEMORRHAGE [None]
  - HAEMORRHAGE [None]
  - HAEMORRHAGE INTRACRANIAL [None]
  - IN-STENT ARTERIAL RESTENOSIS [None]
  - OFF LABEL USE [None]
  - OSTEOMYELITIS [None]
  - PERITONEAL HAEMORRHAGE [None]
  - POST PROCEDURAL COMPLICATION [None]
  - PUNCTURE SITE HAEMORRHAGE [None]
  - VASCULAR PSEUDOANEURYSM [None]
  - VASCULAR STENOSIS [None]
  - VESSEL PUNCTURE SITE HAEMATOMA [None]
